FAERS Safety Report 6891854-8 (Version None)
Quarter: 2010Q3

REPORT INFORMATION
  Report Type: 
  Country: None (occurrence: None)
  Receive Date: 20100731
  Receipt Date: 20071022
  Transmission Date: 20110219
  Serious: No
  Sender: FDA-Public Use
  Company Number: US-PFIZER INC-2007088822

PATIENT
  Sex: Female

DRUGS (2)
  1. NORVASC [Suspect]
     Dates: start: 19970101
  2. LISINOPRIL [Suspect]
     Dates: start: 19970101

REACTIONS (1)
  - COUGH [None]
